FAERS Safety Report 7056508-6 (Version None)
Quarter: 2010Q4

REPORT INFORMATION
  Report Type: 
  Country: None (occurrence: None)
  Receive Date: 20101021
  Receipt Date: 20101011
  Transmission Date: 20110411
  Serious: Yes (Disabling, Other)
  Sender: FDA-Public Use
  Company Number: US-PFIZER INC-2010112409

PATIENT
  Sex: Female
  Weight: 66.7 kg

DRUGS (3)
  1. LYRICA [Suspect]
     Indication: NEUROPATHY PERIPHERAL
     Dosage: 50 MG, 3X/DAY
     Route: 048
     Dates: start: 20060101
  2. COZAAR [Suspect]
     Indication: HYPERTENSION
     Dosage: 50 MG, 2X/DAY
     Route: 048
     Dates: start: 20100101
  3. LOPRESSOR [Concomitant]
     Indication: HYPERTENSION
     Dosage: UNK

REACTIONS (14)
  - ARTHRALGIA [None]
  - BLOOD PRESSURE INCREASED [None]
  - DIZZINESS [None]
  - FEELING COLD [None]
  - FEELING HOT [None]
  - HYPOAESTHESIA [None]
  - JOINT SWELLING [None]
  - MUSCULOSKELETAL PAIN [None]
  - NEUROPATHY PERIPHERAL [None]
  - OEDEMA PERIPHERAL [None]
  - PAIN IN EXTREMITY [None]
  - PARAESTHESIA [None]
  - WEIGHT DECREASED [None]
  - WEIGHT INCREASED [None]
